FAERS Safety Report 23393281 (Version 1)
Quarter: 2024Q1

REPORT INFORMATION
  Report Type: Spontaneous
  Country: US (occurrence: None)
  Receive Date: 20240111
  Receipt Date: 20240111
  Transmission Date: 20240410
  Serious: Yes (unspecified)
  Sender: FDA-Public Use
  Company Number: None

PATIENT
  Age: 63 Year
  Sex: Male
  Weight: 54.2 kg

DRUGS (3)
  1. ENFORTUMAB VEDOTIN [Suspect]
     Active Substance: ENFORTUMAB VEDOTIN
     Indication: Bladder cancer
     Dosage: OTHER FREQUENCY : D1 AND D8, Q21 DAY;?
     Route: 042
     Dates: start: 20231013
  2. ENFORTUMAB VEDOTIN [Suspect]
     Active Substance: ENFORTUMAB VEDOTIN
     Indication: Metastatic neoplasm
  3. PEMBROLIZUMAB [Suspect]
     Active Substance: PEMBROLIZUMAB
     Dates: start: 20231013

REACTIONS (7)
  - Infusion related reaction [None]
  - Infusion site pain [None]
  - Peripheral swelling [None]
  - Superficial vein thrombosis [None]
  - Infusion site vesicles [None]
  - Infusion site pain [None]
  - Infusion site extravasation [None]

NARRATIVE: CASE EVENT DATE: 20231123
